FAERS Safety Report 21926707 (Version 5)
Quarter: 2023Q1

REPORT INFORMATION
  Report Type: Spontaneous
  Country: GB (occurrence: GB)
  Receive Date: 20230130
  Receipt Date: 20230217
  Transmission Date: 20230417
  Serious: Yes (Congenital Anomaly, Other)
  Sender: FDA-Public Use
  Company Number: GB-TEVA-2023-GB-2850707

PATIENT
  Age: 0 Day
  Sex: Male

DRUGS (3)
  1. EMTRICITABINE\TENOFOVIR DISOPROXIL FUMARATE [Suspect]
     Active Substance: EMTRICITABINE\TENOFOVIR DISOPROXIL FUMARATE
     Indication: HIV infection
     Dosage: 1 DOSAGE FORMS DAILY; MANUFACTURER CONTROL NUMBER: 2023-0613846 2023-0613848 AMN23-000860, AMN23-000
     Route: 064
     Dates: start: 20191219
  2. ATAZANAVIR [Suspect]
     Active Substance: ATAZANAVIR
     Indication: HIV infection
     Dosage: 300 MILLIGRAM DAILY;
     Route: 064
     Dates: start: 20110819
  3. RITONAVIR [Suspect]
     Active Substance: RITONAVIR
     Indication: HIV infection
     Dosage: 100 MILLIGRAM DAILY; MANUFACTURER CONTROL NUMBER: AMN23-000860 AMN23-000863
     Route: 064
     Dates: start: 20110819

REACTIONS (11)
  - Cytogenetic abnormality [Unknown]
  - Intraventricular haemorrhage neonatal [Unknown]
  - Periventricular leukomalacia [Unknown]
  - Neonatal seizure [Unknown]
  - Neonatal respiratory distress syndrome [Unknown]
  - Pulmonary haemorrhage neonatal [Unknown]
  - White matter lesion [Unknown]
  - Hyperbilirubinaemia neonatal [Unknown]
  - Premature baby [Unknown]
  - Foetal exposure during pregnancy [Unknown]
  - Gastrooesophageal reflux disease [Unknown]

NARRATIVE: CASE EVENT DATE: 20220407
